FAERS Safety Report 14071582 (Version 2)
Quarter: 2017Q4

REPORT INFORMATION
  Report Type: Report from Study
  Country: US (occurrence: US)
  Receive Date: 20171011
  Receipt Date: 20171023
  Transmission Date: 20180321
  Serious: No
  Sender: FDA-Public Use
  Company Number: US-AMGEN-USASL2017152503

PATIENT
  Age: 88 Year
  Sex: Female

DRUGS (6)
  1. ENBREL [Suspect]
     Active Substance: ETANERCEPT
     Indication: RHEUMATOID ARTHRITIS
     Dosage: 50 MG, QWK ON FRIDAYS
     Route: 065
  2. METHOTREXATE. [Concomitant]
     Active Substance: METHOTREXATE
     Dosage: UNK UNK, QWK
  3. VITAMIN D [Concomitant]
     Active Substance: CHOLECALCIFEROL
     Dosage: UNK
  4. CALCIUM [Concomitant]
     Active Substance: CALCIUM
     Dosage: UNK
  5. ENBREL [Suspect]
     Active Substance: ETANERCEPT
     Dosage: 50 MG, QWK
     Route: 065
     Dates: end: 2015
  6. ENBREL [Suspect]
     Active Substance: ETANERCEPT
     Dosage: 50 MG, QWK
     Route: 065

REACTIONS (10)
  - Influenza [Recovered/Resolved]
  - Productive cough [Unknown]
  - Labelled drug-disease interaction medication error [Unknown]
  - Pharyngitis [Recovered/Resolved]
  - Foot deformity [Unknown]
  - Bone density abnormal [Unknown]
  - Pain [Unknown]
  - Peripheral swelling [Unknown]
  - Decreased immune responsiveness [Unknown]
  - Device breakage [Unknown]

NARRATIVE: CASE EVENT DATE: 2017
